FAERS Safety Report 20395784 (Version 1)
Quarter: 2022Q1

REPORT INFORMATION
  Report Type: Spontaneous
  Country: DE (occurrence: DE)
  Receive Date: 20220130
  Receipt Date: 20220130
  Transmission Date: 20220424
  Serious: Yes (Hospitalization)
  Sender: FDA-Public Use
  Company Number: DE-ZAMBON-202200137DEU

PATIENT
  Age: 18 Month
  Sex: Male

DRUGS (2)
  1. XADAGO [Suspect]
     Active Substance: SAFINAMIDE MESYLATE
     Indication: Accidental exposure to product by child
     Route: 048
  2. BENSERAZIDE\LEVODOPA [Suspect]
     Active Substance: BENSERAZIDE\LEVODOPA
     Indication: Accidental exposure to product by child
     Dosage: 1 DF OF 25-100 MG
     Route: 048

REACTIONS (3)
  - Somnolence [Unknown]
  - Personality change [Unknown]
  - Accidental exposure to product by child [Unknown]
